FAERS Safety Report 21566811 (Version 1)
Quarter: 2022Q4

REPORT INFORMATION
  Report Type: Spontaneous
  Country: US (occurrence: None)
  Receive Date: 20221107
  Receipt Date: 20221107
  Transmission Date: 20230113
  Serious: Yes (Disabling, Other)
  Sender: FDA-Public Use
  Company Number: None

PATIENT
  Age: 77 Year
  Sex: Female
  Weight: 72 kg

DRUGS (8)
  1. PROLIA [Suspect]
     Active Substance: DENOSUMAB
     Indication: Osteoporosis
     Route: 030
     Dates: start: 20201028, end: 20201028
  2. CLONAZEPAM [Concomitant]
     Active Substance: CLONAZEPAM
  3. CALCIUM [Concomitant]
     Active Substance: CALCIUM
  4. VITAMIN C [Concomitant]
     Active Substance: ASCORBIC ACID
  5. D MANNOSE [Concomitant]
  6. CRANBERRY [Concomitant]
     Active Substance: CRANBERRY
  7. IRON [Concomitant]
     Active Substance: IRON
  8. Hyland^s Leg Cramp pills [Concomitant]

REACTIONS (12)
  - Hypersensitivity [None]
  - Gait disturbance [None]
  - Muscle contractions involuntary [None]
  - Arthritis [None]
  - Muscle disorder [None]
  - Myositis [None]
  - Bursa disorder [None]
  - Asthenia [None]
  - Gait disturbance [None]
  - Hypoacusis [None]
  - Drooling [None]
  - Tooth fracture [None]

NARRATIVE: CASE EVENT DATE: 20201105
